FAERS Safety Report 9517338 (Version 2)
Quarter: 2013Q3

REPORT INFORMATION
  Report Type: Spontaneous
  Country: BR (occurrence: BR)
  Receive Date: 20130911
  Receipt Date: 20130918
  Transmission Date: 20140515
  Serious: Yes (Other)
  Sender: FDA-Public Use
  Company Number: BR-PFIZER INC-2013258141

PATIENT
  Age: 83 Year
  Sex: Female
  Weight: 79 kg

DRUGS (4)
  1. LIPITOR [Suspect]
     Indication: BLOOD CHOLESTEROL INCREASED
     Dosage: 40 MG, 1X/DAY
     Route: 048
     Dates: start: 20080401, end: 2010
  2. GALVUS [Concomitant]
     Indication: DIABETES MELLITUS
     Dosage: DAYUNSPECIFIED DOSAGE, 2X/DAY
  3. GLIFAGE [Concomitant]
     Indication: DIABETES MELLITUS
     Dosage: UNSPECIFIED DOSAGE, 3X/DAY
  4. CRESTOR [Concomitant]
     Indication: BLOOD CHOLESTEROL INCREASED
     Dosage: UNSPECIFIED DOSAGE, ONCE DAILY

REACTIONS (3)
  - Herpes zoster [Recovering/Resolving]
  - Pain in extremity [Unknown]
  - Neuralgia [Unknown]
